FAERS Safety Report 5346766-8 (Version None)
Quarter: 2007Q2

REPORT INFORMATION
  Report Type: 
  Country: None (occurrence: None)
  Receive Date: 20070605
  Receipt Date: 20070524
  Transmission Date: 20071010
  Serious: Yes (Hospitalization)
  Sender: FDA-Public Use
  Company Number: FR-PFIZER INC-2007043356

PATIENT
  Sex: Female

DRUGS (13)
  1. ATARAX [Suspect]
     Dosage: DAILY DOSE:25MG
     Route: 048
     Dates: start: 20070403, end: 20070412
  2. ACUPAN [Suspect]
     Dosage: DAILY DOSE:80MG
     Route: 048
     Dates: start: 20070403, end: 20070413
  3. PARACETAMOL [Suspect]
     Dosage: TEXT:4 G
     Route: 048
     Dates: start: 20070403, end: 20070410
  4. ISOFLURANE [Suspect]
     Route: 055
     Dates: start: 20070322, end: 20070322
  5. INIPOMP [Suspect]
     Route: 048
     Dates: start: 20070405, end: 20070410
  6. SEVORANE [Suspect]
     Dosage: TEXT:1.5 ML ONCE
     Route: 055
     Dates: start: 20070403, end: 20070403
  7. GAVISCON [Concomitant]
  8. LOVENOX [Concomitant]
  9. ARCOXIA [Concomitant]
  10. ZOPICLONE [Concomitant]
     Dates: start: 20070404, end: 20070412
  11. PARACETAMOL [Concomitant]
     Dates: start: 20070403, end: 20070403
  12. PROPOFOL [Concomitant]
     Dates: start: 20070403, end: 20070403
  13. SUFENTANIL CITRATE [Concomitant]
     Dates: start: 20070403, end: 20070403

REACTIONS (5)
  - ALANINE AMINOTRANSFERASE INCREASED [None]
  - ASPARTATE AMINOTRANSFERASE INCREASED [None]
  - BLOOD LACTATE DEHYDROGENASE INCREASED [None]
  - GAMMA-GLUTAMYLTRANSFERASE INCREASED [None]
  - VOMITING [None]
